FAERS Safety Report 8986149 (Version 1)
Quarter: 2012Q4

REPORT INFORMATION
  Report Type: 
  Country: CA (occurrence: None)
  Receive Date: 20121019
  Receipt Date: 20121019
  Transmission Date: 20130627
  Serious: Yes (Other)
  Sender: FDA-Public Use
  Company Number: 219028

PATIENT
  Age: 27 Year
  Sex: Female
  Weight: 145 kg

DRUGS (1)
  1. INNOHEP (TINZAPARIN SODIUM) (2400 IU) [Suspect]
     Indication: STROKE PREVENTION
     Route: 058
     Dates: start: 20120818

REACTIONS (1)
  - Cerebrovascular accident [None]
